FAERS Safety Report 22616759 (Version 2)
Quarter: 2023Q2

REPORT INFORMATION
  Report Type: Spontaneous
  Country: DE (occurrence: DE)
  Receive Date: 20230619
  Receipt Date: 20230630
  Transmission Date: 20230721
  Serious: Yes (Life-Threatening, Hospitalization, Other)
  Sender: FDA-Public Use
  Company Number: DE-AMGEN-DEUNI2023096808

PATIENT
  Age: 83 Year
  Sex: Male

DRUGS (13)
  1. DEXAMETHASONE [Suspect]
     Active Substance: DEXAMETHASONE
     Indication: Plasma cell myeloma
     Dosage: 20 MILLIGRAM
     Route: 065
     Dates: start: 20230306, end: 20230322
  2. CARFILZOMIB [Suspect]
     Active Substance: CARFILZOMIB
     Indication: Plasma cell myeloma
     Dosage: 39 MILLIGRAM
     Route: 065
     Dates: start: 20230306, end: 20230307
  3. CARFILZOMIB [Suspect]
     Active Substance: CARFILZOMIB
     Dosage: 110 MILLIGRAM
     Route: 065
     Dates: end: 20230322
  4. CLEMASTINE FUMARATE [Concomitant]
     Active Substance: CLEMASTINE FUMARATE
     Indication: Product used for unknown indication
     Dosage: 2MG-5 MILLILITER PER CYCLE
     Route: 042
     Dates: start: 20191118, end: 20230131
  5. OMEPRAZOLE [Concomitant]
     Active Substance: OMEPRAZOLE
     Indication: Product used for unknown indication
     Dosage: 20 MILLIGRAM, QD (ON 19/NOV/2019: FREQUENCY PER CYCLE)
     Route: 048
     Dates: start: 20191111
  6. ACETAMINOPHEN [Concomitant]
     Active Substance: ACETAMINOPHEN
     Indication: Product used for unknown indication
     Dosage: 100 MILLIGRAM PER CYCLE
     Route: 048
     Dates: start: 20191118, end: 20230131
  7. PREDNISOLONE SODIUM SUCCINATE [Concomitant]
     Active Substance: PREDNISOLONE SODIUM SUCCINATE
     Indication: Product used for unknown indication
     Dosage: 100 MILLIGRAM PER CYCLE
     Route: 042
     Dates: start: 20191118
  8. MCP [Concomitant]
     Active Substance: METOCLOPRAMIDE HYDROCHLORIDE
     Indication: Product used for unknown indication
     Dosage: UNK, AS NECESSARY(TAKEN ON ON 19/NOV/2023 AS NEEDED)
     Route: 048
     Dates: start: 20191111, end: 20230216
  9. ACICLO [Concomitant]
     Indication: Product used for unknown indication
     Dosage: 400 MILLIGRAM, BID (TWICE A DAY)
     Route: 048
     Dates: start: 20191111, end: 20230525
  10. METAMIZOLE [Concomitant]
     Active Substance: METAMIZOLE
     Indication: Product used for unknown indication
     Dosage: 750 MILLIGRAM, TID
     Route: 048
     Dates: start: 20180309, end: 20230525
  11. CLOTRIMAZOLE [Concomitant]
     Active Substance: CLOTRIMAZOLE
     Indication: Product used for unknown indication
     Dosage: UNK UNK, 2 TIMES/WK
     Route: 048
     Dates: start: 20191111, end: 20230525
  12. LOPERAMIDE [Concomitant]
     Active Substance: LOPERAMIDE
     Indication: Product used for unknown indication
     Dosage: 2 MILLIGRAM
     Route: 048
     Dates: start: 20230306, end: 20230525
  13. FILGRASTIM [Concomitant]
     Active Substance: FILGRASTIM
     Indication: Product used for unknown indication
     Dosage: UNK, AS NECESSARY(ZERO IU AS NEEDED)
     Route: 058
     Dates: start: 20191209, end: 20230313

REACTIONS (2)
  - Prerenal failure [Recovering/Resolving]
  - Thrombocytopenia [Recovered/Resolved]

NARRATIVE: CASE EVENT DATE: 20230301
